FAERS Safety Report 5510933-0 (Version None)
Quarter: 2007Q4

REPORT INFORMATION
  Report Type: 
  Country: None (occurrence: None)
  Receive Date: 20071106
  Receipt Date: 20071106
  Transmission Date: 20080405
  Serious: Yes (Life-Threatening, Hospitalization, Disabling, Other)
  Sender: FDA-Public Use
  Company Number: None

PATIENT
  Sex: Female

DRUGS (2)
  1. EFFEXOR XR [Suspect]
     Indication: ANXIETY
     Dosage: 300 MGS AM PO
     Route: 048
     Dates: start: 20060101, end: 20061129
  2. EFFEXOR XR [Suspect]
     Indication: DEPRESSION
     Dosage: 300 MGS AM PO
     Route: 048
     Dates: start: 20060101, end: 20061129

REACTIONS (9)
  - CARDIO-RESPIRATORY ARREST [None]
  - CHILDHOOD DISINTEGRATIVE DISORDER [None]
  - CONVULSION [None]
  - DRUG EXPOSURE DURING PREGNANCY [None]
  - DYSPHAGIA [None]
  - EATING DISORDER [None]
  - EYE DISORDER [None]
  - POOR SUCKING REFLEX [None]
  - RESPIRATORY DISORDER NEONATAL [None]
